FAERS Safety Report 26206891 (Version 1)
Quarter: 2025Q4

REPORT INFORMATION
  Report Type: Spontaneous
  Country: EU (occurrence: EU)
  Receive Date: 20251229
  Receipt Date: 20251229
  Transmission Date: 20260118
  Serious: Yes (Death)
  Sender: BRISTOL-MYERS SQUIBB COMPANY
  Company Number: None

PATIENT
  Age: 90 Year
  Sex: Female

DRUGS (2)
  1. ELIQUIS [Suspect]
     Active Substance: APIXABAN
     Indication: Atrial fibrillation
     Dosage: 1-0-1
     Route: 048
     Dates: start: 20241212, end: 20250207
  2. ELIQUIS [Suspect]
     Active Substance: APIXABAN
     Dosage: 1-0-1
     Route: 048
     Dates: start: 20250208

REACTIONS (1)
  - Head injury [Fatal]

NARRATIVE: CASE EVENT DATE: 20250208
